FAERS Safety Report 5765645-5 (Version None)
Quarter: 2008Q2

REPORT INFORMATION
  Report Type: 
  Country: None (occurrence: None)
  Receive Date: 20080606
  Receipt Date: 20080606
  Transmission Date: 20081010
  Serious: No
  Sender: FDA-Public Use
  Company Number: None

PATIENT
  Age: 52 Year
  Sex: Male
  Weight: 64 kg

DRUGS (1)
  1. VARENICLINE [Suspect]
     Indication: SMOKING CESSATION THERAPY
     Dosage: 1 MG BID PO
     Route: 048
     Dates: start: 20080408, end: 20080605

REACTIONS (5)
  - ABNORMAL DREAMS [None]
  - AGITATION [None]
  - ANXIETY [None]
  - ILL-DEFINED DISORDER [None]
  - IRRITABILITY [None]
